FAERS Safety Report 5162790-2 (Version None)
Quarter: 2006Q4

REPORT INFORMATION
  Report Type: 
  Country: None (occurrence: None)
  Receive Date: 20061121
  Receipt Date: 20061107
  Transmission Date: 20070319
  Serious: Yes (Other)
  Sender: FDA-Public Use
  Company Number: US-2006-019325

PATIENT
  Age: 27 Year
  Sex: Female

DRUGS (1)
  1. BETASERON [Suspect]
     Indication: MULTIPLE SCLEROSIS
     Dosage: UNK, UNK, SUBCUTANEOUS
     Route: 058
     Dates: start: 20050317, end: 20060102

REACTIONS (2)
  - INJECTION SITE MASS [None]
  - MYOCARDIAL INFARCTION [None]
